FAERS Safety Report 8759810 (Version 1)
Quarter: 2012Q4

REPORT INFORMATION
  Report Type: 
  Country: FR (occurrence: FR)
  Receive Date: 20120829
  Receipt Date: 20120829
  Transmission Date: 20130627
  Serious: Yes (Hospitalization, Disabling, Other)
  Sender: FDA-Public Use
  Company Number: FR-ASTRAZENECA-2012SE61168

PATIENT
  Age: 877 Month
  Sex: Female

DRUGS (9)
  1. CRESTOR [Suspect]
     Route: 048
     Dates: start: 20101018, end: 20110817
  2. JANUVIA [Suspect]
     Dates: start: 20110413, end: 20110817
  3. TERCIAN [Concomitant]
  4. PROZAC [Concomitant]
  5. DIAMICRON [Concomitant]
  6. XANAX [Concomitant]
  7. INSULINE [Concomitant]
  8. HAVLANE [Concomitant]
  9. PARACETAMOL [Concomitant]
     Dates: start: 20110810

REACTIONS (10)
  - Arthropathy [Recovering/Resolving]
  - Intervertebral disc space narrowing [Unknown]
  - Myalgia [Recovering/Resolving]
  - Mental disorder [Unknown]
  - Weight decreased [Unknown]
  - Bone density decreased [Unknown]
  - Nerve compression [Unknown]
  - Haemoglobin decreased [None]
  - Glycosylated haemoglobin increased [None]
  - Nerve compression [None]
